FAERS Safety Report 10105351 (Version 2)
Quarter: 2014Q3

REPORT INFORMATION
  Report Type: Other
  Country: US (occurrence: US)
  Receive Date: 20140424
  Receipt Date: 20140813
  Transmission Date: 20150326
  Serious: Yes (Hospitalization, Other)
  Sender: FDA-Public Use
  Company Number: US-GSKPPD-2014GSK001155

PATIENT
  Age: 53 Year
  Sex: Male

DRUGS (10)
  1. KCL [Concomitant]
     Active Substance: POTASSIUM CHLORIDE
     Dosage: QAM
  2. LOPRESSOR [Concomitant]
     Active Substance: METOPROLOL TARTRATE
     Dosage: BID
  3. ECOTRIN [Concomitant]
     Active Substance: ASPIRIN
     Dosage: QD
  4. LIPITOR [Concomitant]
     Active Substance: ATORVASTATIN CALCIUM
     Dosage: QD
  5. COLACE [Concomitant]
     Active Substance: DOCUSATE SODIUM
  6. AVANDIA [Suspect]
     Active Substance: ROSIGLITAZONE MALEATE
     Indication: DIABETES MELLITUS
     Route: 048
     Dates: start: 200108, end: 200308
  7. AMARYL [Concomitant]
     Active Substance: GLIMEPIRIDE
     Dosage: BID
  8. LASIX [Concomitant]
     Active Substance: FUROSEMIDE
     Dosage: QAM
  9. ALTACE [Concomitant]
     Active Substance: RAMIPRIL
     Dosage: BID
  10. NITROGLYCERIN. [Concomitant]
     Active Substance: NITROGLYCERIN
     Route: 060

REACTIONS (1)
  - Myocardial infarction [Recovered/Resolved]

NARRATIVE: CASE EVENT DATE: 20010919
